FAERS Safety Report 21919316 (Version 2)
Quarter: 2023Q1

REPORT INFORMATION
  Report Type: Report from Study
  Country: US (occurrence: US)
  Receive Date: 20230127
  Receipt Date: 20230309
  Transmission Date: 20230417
  Serious: Yes (Hospitalization)
  Sender: FDA-Public Use
  Company Number: US-ACADIA PHARMACEUTICALS INC.-ACA-2023-PIM-000245

PATIENT
  Age: 87 Year
  Sex: Female

DRUGS (13)
  1. NUPLAZID [Suspect]
     Active Substance: PIMAVANSERIN TARTRATE
     Indication: Parkinson^s disease psychosis
     Dosage: 34 MILLIGRAM, QD
     Route: 048
     Dates: start: 20220406
  2. NUPLAZID [Suspect]
     Active Substance: PIMAVANSERIN TARTRATE
     Indication: Hallucination
  3. SINEMET CR [Concomitant]
     Active Substance: CARBIDOPA\LEVODOPA
     Dosage: 25/100 MG
  4. ZETIA [Concomitant]
     Active Substance: EZETIMIBE
     Dosage: 10 MILLIGRAM
  5. ASPIRIN [Concomitant]
     Active Substance: ASPIRIN
     Dosage: 81 MILLIGRAM
  6. FERROUS GLUCONATE [Concomitant]
     Active Substance: FERROUS GLUCONATE
     Dosage: 324 MILLIGRAM
  7. PLAVIX [Concomitant]
     Active Substance: CLOPIDOGREL BISULFATE
     Dosage: 75 MILLIGRAM
  8. CRESTOR [Concomitant]
     Active Substance: ROSUVASTATIN CALCIUM
     Dosage: 20 MILLIGRAM
  9. LASIX [Concomitant]
     Active Substance: FUROSEMIDE
     Dosage: 40 MILLIGRAM
  10. FLUTICASONE [Concomitant]
     Active Substance: FLUTICASONE
     Dosage: 50 MCG SPRAY
  11. XANAX [Concomitant]
     Active Substance: ALPRAZOLAM
     Dosage: 2 MILLIGRAM
  12. POTASSIUM [Concomitant]
     Active Substance: POTASSIUM
  13. NUEDEXTA [Concomitant]
     Active Substance: DEXTROMETHORPHAN HYDROBROMIDE\QUINIDINE SULFATE
     Dosage: 20-10 MG

REACTIONS (2)
  - Dizziness postural [Not Recovered/Not Resolved]
  - Visual impairment [Not Recovered/Not Resolved]

NARRATIVE: CASE EVENT DATE: 20230102
